FAERS Safety Report 22226246 (Version 1)
Quarter: 2023Q2

REPORT INFORMATION
  Report Type: Report from Study
  Country: US (occurrence: US)
  Receive Date: 20230419
  Receipt Date: 20230419
  Transmission Date: 20230722
  Serious: No
  Sender: FDA-Public Use
  Company Number: US-ETON PHARMACEUTICALS, INC-2023ETO000077

PATIENT

DRUGS (1)
  1. ALKINDI SPRINKLE [Suspect]
     Active Substance: HYDROCORTISONE
     Indication: Adrenogenital syndrome
     Dosage: 1 MG CAPSULES AND IS PRESCRIBED 2 MG IN THE MORNING, 1 MG IN THE AFTERNOON, AND 1 MG AT NIGHT
     Route: 048
     Dates: start: 20230317

REACTIONS (4)
  - Product use complaint [Unknown]
  - Incorrect dose administered [Unknown]
  - Intentional product use issue [Unknown]
  - No adverse event [Unknown]
